FAERS Safety Report 9886613 (Version 1)
Quarter: 2014Q1

REPORT INFORMATION
  Report Type: Spontaneous
  Country: GB (occurrence: GB)
  Receive Date: 20140210
  Receipt Date: 20140210
  Transmission Date: 20141002
  Serious: Yes (Hospitalization)
  Sender: FDA-Public Use
  Company Number: GB-ACTAVISPR-2013-24814

PATIENT
  Sex: Female

DRUGS (1)
  1. TRIMETHOPRIM (UNKNOWN) [Suspect]
     Indication: PRODUCT USED FOR UNKNOWN INDICATION
     Dosage: UNK, UNKNOWN
     Route: 065

REACTIONS (2)
  - Loss of consciousness [Recovered/Resolved]
  - Unevaluable event [Recovered/Resolved]
